FAERS Safety Report 21347797 (Version 1)
Quarter: 2022Q3

REPORT INFORMATION
  Report Type: Spontaneous
  Country: US (occurrence: US)
  Receive Date: 20220919
  Receipt Date: 20220919
  Transmission Date: 20221027
  Serious: No
  Sender: FDA-Public Use
  Company Number: US-AUROBINDO-AUR-APL-2021-050923

PATIENT
  Age: 56 Year
  Sex: Female
  Weight: 62.5 kg

DRUGS (3)
  1. ALPRAZOLAM [Suspect]
     Active Substance: ALPRAZOLAM
     Indication: Stress
     Dosage: UNK, ONE IN THE MORNING AND ONE IN THE EVENING AND WILL TAKE 03 IN SOME TIMES
     Route: 065
     Dates: start: 20210930, end: 20211004
  2. ALPRAZOLAM [Suspect]
     Active Substance: ALPRAZOLAM
     Indication: Anxiety
  3. BYSTOLIC [Concomitant]
     Active Substance: NEBIVOLOL HYDROCHLORIDE
     Indication: Product used for unknown indication
     Dosage: UNK
     Route: 065

REACTIONS (1)
  - Eye movement disorder [Recovered/Resolved]
